FAERS Safety Report 23323534 (Version 1)
Quarter: 2023Q4

REPORT INFORMATION
  Report Type: Other
  Country: US (occurrence: None)
  Receive Date: 20231220
  Receipt Date: 20231220
  Transmission Date: 20240109
  Serious: No
  Sender: FDA-Public Use
  Company Number: US-ROCHE-3364590

PATIENT
  Age: 76 Year
  Sex: Male

DRUGS (4)
  1. RITUXIMAB [Suspect]
     Active Substance: RITUXIMAB
     Indication: Follicular lymphoma stage III
     Dosage: 6 CYCLES OF THERAPY
     Route: 065
  2. RITUXIMAB [Suspect]
     Active Substance: RITUXIMAB
     Dosage: FOR 12 CYCLES
     Route: 065
     Dates: start: 2019
  3. LENALIDOMIDE [Suspect]
     Active Substance: LENALIDOMIDE
     Indication: Follicular lymphoma stage III
     Dosage: FOR 12 CYCLES
     Route: 065
     Dates: start: 2019
  4. TAZEMETOSTAT [Concomitant]
     Active Substance: TAZEMETOSTAT
     Indication: Follicular lymphoma stage III
     Route: 048

REACTIONS (1)
  - Disease progression [Unknown]
